FAERS Safety Report 5291043-7 (Version None)
Quarter: 2007Q2

REPORT INFORMATION
  Report Type: 
  Country: None (occurrence: None)
  Receive Date: 20070409
  Receipt Date: 20070404
  Transmission Date: 20071010
  Serious: Yes (Hospitalization)
  Sender: FDA-Public Use
  Company Number: FR-AVENTIS-200711209FR

PATIENT
  Age: 87 Year
  Sex: Female

DRUGS (3)
  1. LASILIX                            /00032601/ [Suspect]
     Indication: DRUG USE FOR UNKNOWN INDICATION
     Route: 048
     Dates: start: 20070227, end: 20070305
  2. GENTAMICIN [Suspect]
     Route: 042
     Dates: start: 20070227, end: 20070305
  3. CLAMOXYL                           /00249601/ [Suspect]
     Route: 042
     Dates: start: 20070227, end: 20070306

REACTIONS (2)
  - BLOOD CREATININE INCREASED [None]
  - RENAL FAILURE ACUTE [None]
